FAERS Safety Report 14784338 (Version 2)
Quarter: 2018Q3

REPORT INFORMATION
  Report Type: Report from Study
  Country: None (occurrence: GB)
  Receive Date: 20180420
  Receipt Date: 20180814
  Transmission Date: 20181010
  Serious: Yes (Hospitalization)
  Sender: FDA-Public Use
  Company Number: GB-BAUSCH-BL-2018-010421

PATIENT
  Age: 72 Year
  Sex: Female

DRUGS (6)
  1. POMALIDOMIDE [Suspect]
     Active Substance: POMALIDOMIDE
     Dosage: 4 MILLIGRAM DAILY
     Route: 048
     Dates: start: 20180309, end: 20180329
  2. DEXAMETHASONE. [Suspect]
     Active Substance: DEXAMETHASONE
     Indication: PLASMA CELL MYELOMA
     Dosage: 2.8571 MILLIGRAM; 20 MILLIGRAM WEEKLY
     Route: 065
     Dates: start: 20170922, end: 20171013
  3. DEXAMETHASONE. [Suspect]
     Active Substance: DEXAMETHASONE
     Dosage: 20 MILLIGRAM WEEKLY
     Route: 065
     Dates: start: 20180104, end: 20180125
  4. POMALIDOMIDE [Suspect]
     Active Substance: POMALIDOMIDE
     Indication: PLASMA CELL MYELOMA
     Dosage: 4 MILLIGRAM DAILY
     Route: 048
     Dates: start: 20170922, end: 20171012
  5. DEXAMETHASONE. [Suspect]
     Active Substance: DEXAMETHASONE
     Dosage: 20 MILLIGRAM WEEKLY
     Route: 065
     Dates: start: 20180309, end: 20180330
  6. POMALIDOMIDE [Suspect]
     Active Substance: POMALIDOMIDE
     Dosage: 4 MILLIGRAM DAILY
     Route: 048
     Dates: start: 20180104, end: 20180124

REACTIONS (3)
  - Neutropenic sepsis [Not Recovered/Not Resolved]
  - Hypercalcaemia [Recovered/Resolved]
  - Pyrexia [Not Recovered/Not Resolved]

NARRATIVE: CASE EVENT DATE: 20180212
